FAERS Safety Report 5834366-2 (Version None)
Quarter: 2008Q3

REPORT INFORMATION
  Report Type: 
  Country: None (occurrence: None)
  Receive Date: 20080731
  Receipt Date: 20080724
  Transmission Date: 20090109
  Serious: Yes (Other)
  Sender: FDA-Public Use
  Company Number: 2008SP011499

PATIENT
  Sex: Male

DRUGS (2)
  1. CLARITIN-D 24 HOUR [Suspect]
     Indication: COUGH
     Dosage: 10 MG; ONCE
     Dates: start: 20080603
  2. CLARITIN-D 24 HOUR [Suspect]
     Indication: RHINORRHOEA
     Dosage: 10 MG; ONCE
     Dates: start: 20080603

REACTIONS (3)
  - ABDOMINAL PAIN UPPER [None]
  - BACK PAIN [None]
  - DYSURIA [None]
